FAERS Safety Report 5521353-7 (Version None)
Quarter: 2007Q4

REPORT INFORMATION
  Report Type: 
  Country: None (occurrence: None)
  Receive Date: 20071119
  Receipt Date: 20071024
  Transmission Date: 20080405
  Serious: No
  Sender: FDA-Public Use
  Company Number: US-BOEHRINGER INGELHEIM PHARMACEUTICALS, INC.-2007-BP-21751BP

PATIENT
  Age: 73 Year
  Sex: Female
  Weight: 84 kg

DRUGS (5)
  1. SPIRIVA [Suspect]
     Indication: CHRONIC OBSTRUCTIVE PULMONARY DISEASE
     Route: 055
     Dates: start: 20070913
  2. SPIRIVA [Suspect]
     Indication: DYSPNOEA
  3. LIPITOR [Concomitant]
  4. CALCIUM [Concomitant]
  5. FLOMAX [Concomitant]

REACTIONS (3)
  - CYSTITIS [None]
  - DYSPHONIA [None]
  - PHARYNGOLARYNGEAL PAIN [None]
